FAERS Safety Report 15252362 (Version 1)
Quarter: 2018Q3

REPORT INFORMATION
  Report Type: Spontaneous
  Country: US (occurrence: US)
  Receive Date: 20180807
  Receipt Date: 20180807
  Transmission Date: 20181010
  Serious: No
  Sender: FDA-Public Use
  Company Number: US-BAUSCH-BL-2018-020742

PATIENT
  Age: 75 Year
  Sex: Female
  Weight: 65.83 kg

DRUGS (1)
  1. ALAWAY [Suspect]
     Active Substance: KETOTIFEN FUMARATE
     Indication: EYE ALLERGY
     Dosage: 1 DROP INTO EACH EYE
     Route: 047
     Dates: start: 20180120, end: 20180120

REACTIONS (3)
  - Ocular hyperaemia [Recovered/Resolved]
  - Eye pain [Recovered/Resolved]
  - Eye irritation [Recovered/Resolved]

NARRATIVE: CASE EVENT DATE: 20180120
